FAERS Safety Report 4400925-7 (Version None)
Quarter: 2004Q3

REPORT INFORMATION
  Report Type: 
  Country: None (occurrence: None)
  Receive Date: 20040907
  Receipt Date: 20030812
  Transmission Date: 20050211
  Serious: No
  Sender: FDA-Public Use
  Company Number: US-BRISTOL-MYERS SQUIBB COMPANY-12353405

PATIENT
  Age: 70 Year
  Sex: Male
  Weight: 91 kg

DRUGS (17)
  1. COUMADIN [Suspect]
     Indication: ATRIAL FIBRILLATION
     Dosage: DOSE VALUE: 3 MG DAILY FOR 4 DAYS OF THE WEEK, ALTERNATING WITH 2.5 MG THE OTHER THREE DAYS.
     Route: 048
  2. DEMADEX [Concomitant]
  3. K-DUR 10 [Concomitant]
  4. LIPITOR [Concomitant]
  5. ZESTRIL [Concomitant]
  6. GLUCOTROL XL [Concomitant]
  7. LANOXIN [Concomitant]
  8. AVANDIA [Concomitant]
     Indication: BLOOD GLUCOSE INCREASED
  9. TOPROL-XL [Concomitant]
  10. NITRO-DUR [Concomitant]
     Route: 062
  11. NITRO [Concomitant]
     Route: 048
  12. NITRO-SPRAY [Concomitant]
  13. ZYLOPRIM [Concomitant]
     Indication: GOUT
  14. INDOCIN [Concomitant]
     Indication: GOUT
  15. VOLTAREN [Concomitant]
     Indication: GOUT
  16. COLCHICINE [Concomitant]
     Indication: GOUT
  17. PREDNISONE [Concomitant]
     Indication: GOUT

REACTIONS (3)
  - DYSKINESIA [None]
  - INCREASED TENDENCY TO BRUISE [None]
  - OEDEMA PERIPHERAL [None]
